FAERS Safety Report 19901655 (Version 1)
Quarter: 2021Q3

REPORT INFORMATION
  Report Type: Spontaneous
  Country: DE (occurrence: DE)
  Receive Date: 20210930
  Receipt Date: 20210930
  Transmission Date: 20211014
  Serious: Yes (Death)
  Sender: FDA-Public Use
  Company Number: DE-DRREDDYS-CLI/GER/21/0142273

PATIENT
  Sex: Female

DRUGS (8)
  1. KISQALI [Suspect]
     Active Substance: RIBOCICLIB
     Indication: BREAST CANCER METASTATIC
     Dosage: (DAILY DOSE, SCHEMA 21 DAYS INTAKE, THEN 7 DAYS PAUSE)
     Route: 048
     Dates: start: 20200507, end: 20200515
  2. KISQALI [Suspect]
     Active Substance: RIBOCICLIB
     Dosage: (DAILY DOSE, SCHEMA 21 DAYS INTAKE, THEN 7 DAYS PAUSE)
     Route: 048
     Dates: start: 20201120, end: 20201225
  3. KISQALI [Suspect]
     Active Substance: RIBOCICLIB
     Dosage: (DAILY DOSE, SCHEMA 21 DAYS INTAKE, THEN 7 DAYS PAUSE)
     Route: 048
     Dates: start: 20191207, end: 20200301
  4. KISQALI [Suspect]
     Active Substance: RIBOCICLIB
     Dosage: (DAILY DOSE, SCHEMA 21 DAYS INTAKE, THEN 7 DAYS PAUSE)
     Route: 048
     Dates: start: 20201003, end: 20201119
  5. KISQALI [Suspect]
     Active Substance: RIBOCICLIB
     Dosage: (DAILY DOSE, SCHEMA 21 DAYS INTAKE, THEN 7 DAYS PAUSE)
     Route: 048
     Dates: start: 20200302, end: 20200506
  6. KISQALI [Suspect]
     Active Substance: RIBOCICLIB
     Dosage: (DAILY DOSE, SCHEMA 21 DAYS INTAKE, THEN 7 DAYS PAUSE)
     Route: 048
     Dates: start: 20200516, end: 20200807
  7. FULVESTRANT. [Suspect]
     Active Substance: FULVESTRANT
     Indication: BREAST CANCER METASTATIC
     Dosage: QW (DAILY DOSE)
     Route: 030
     Dates: start: 20191213, end: 20201130
  8. KISQALI [Suspect]
     Active Substance: RIBOCICLIB
     Dosage: (DAILY DOSE, SCHEMA 21 DAYS INTAKE, THEN 7 DAYS PAUSE)
     Route: 048
     Dates: start: 20200808, end: 20201002

REACTIONS (2)
  - Breast cancer metastatic [Fatal]
  - Malignant neoplasm progression [Fatal]

NARRATIVE: CASE EVENT DATE: 20201228
